FAERS Safety Report 18047451 (Version 1)
Quarter: 2020Q3

REPORT INFORMATION
  Report Type: Spontaneous
  Country: DE (occurrence: DE)
  Receive Date: 20200721
  Receipt Date: 20200721
  Transmission Date: 20201103
  Serious: Yes (Death, Other)
  Sender: FDA-Public Use
  Company Number: DE-LUPIN PHARMACEUTICALS INC.-2020-03562

PATIENT
  Age: 34 Year
  Sex: Male
  Weight: 102 kg

DRUGS (2)
  1. TEMAZEPAM. [Suspect]
     Active Substance: TEMAZEPAM
     Indication: PRODUCT USED FOR UNKNOWN INDICATION
     Dosage: UNK
     Route: 065
  2. PREGABALIN. [Interacting]
     Active Substance: PREGABALIN
     Indication: ANXIETY DISORDER
     Dosage: UNK
     Route: 065

REACTIONS (2)
  - Depressed level of consciousness [Fatal]
  - Drug interaction [Fatal]
